FAERS Safety Report 13251649 (Version 1)
Quarter: 2017Q1

REPORT INFORMATION
  Report Type: Report from Study
  Country: None (occurrence: BR)
  Receive Date: 20170220
  Receipt Date: 20170220
  Transmission Date: 20170428
  Serious: Yes (Other)
  Sender: FDA-Public Use
  Company Number: BR-ABBVIE-16K-020-1801368-00

PATIENT
  Age: 48 Year
  Sex: Female
  Weight: 80 kg

DRUGS (9)
  1. AMITRIPTYLINE [Concomitant]
     Active Substance: AMITRIPTYLINE
     Indication: FIBROMYALGIA
     Route: 048
     Dates: start: 2015
  2. AEROLIN [Concomitant]
     Active Substance: ALBUTEROL
     Indication: ASTHMA
     Route: 048
     Dates: start: 2002
  3. METHOTREXATE. [Concomitant]
     Active Substance: METHOTREXATE
     Indication: ARTHRITIS
     Route: 048
     Dates: start: 2015
  4. AEROLIN [Concomitant]
     Active Substance: ALBUTEROL
  5. ALPRAZOLAM. [Concomitant]
     Active Substance: ALPRAZOLAM
     Indication: ANXIETY
     Route: 048
     Dates: start: 2007
  6. ALPRAZOLAM. [Concomitant]
     Active Substance: ALPRAZOLAM
     Indication: INSOMNIA
  7. SERTRALINE [Concomitant]
     Active Substance: SERTRALINE HYDROCHLORIDE
     Indication: ASTHMA
     Route: 048
     Dates: start: 20170118
  8. HUMIRA [Suspect]
     Active Substance: ADALIMUMAB
     Indication: PSORIATIC ARTHROPATHY
     Route: 058
     Dates: start: 20160815, end: 20170201
  9. SERTRALINE [Concomitant]
     Active Substance: SERTRALINE HYDROCHLORIDE
     Indication: AGITATION

REACTIONS (14)
  - Lung disorder [Unknown]
  - Pharyngitis [Recovered/Resolved]
  - Catarrh [Unknown]
  - Asthmatic crisis [Not Recovered/Not Resolved]
  - Immunodeficiency [Recovering/Resolving]
  - Hypertension [Recovered/Resolved]
  - Hypertension [Recovering/Resolving]
  - Fatigue [Not Recovered/Not Resolved]
  - Arrhythmia [Recovered/Resolved]
  - Lung infection [Recovered/Resolved]
  - Allergic pharyngitis [Recovered/Resolved]
  - Asthmatic crisis [Recovered/Resolved]
  - Arrhythmia [Recovering/Resolving]
  - Infection [Unknown]

NARRATIVE: CASE EVENT DATE: 20160815
